FAERS Safety Report 20547258 (Version 1)
Quarter: 2022Q1

REPORT INFORMATION
  Report Type: Spontaneous
  Country: US (occurrence: US)
  Receive Date: 20220303
  Receipt Date: 20220303
  Transmission Date: 20220424
  Serious: Yes (Hospitalization)
  Sender: FDA-Public Use
  Company Number: US-GW PHARMA-202202USGW01000

PATIENT
  Age: 8 Year
  Sex: Male

DRUGS (1)
  1. EPIDIOLEX [Suspect]
     Active Substance: CANNABIDIOL
     Indication: Lennox-Gastaut syndrome
     Dosage: 250 MILLIGRAM, FREQUENCY NOT REPORTED
     Route: 048
     Dates: start: 202201

REACTIONS (1)
  - Anger [Unknown]

NARRATIVE: CASE EVENT DATE: 20220217
